FAERS Safety Report 8439706 (Version 2)
Quarter: 2013Q2

REPORT INFORMATION
  Report Type: Spontaneous
  Country: US (occurrence: None)
  Receive Date: 20120104
  Receipt Date: 20120508
  Transmission Date: 20140414
  Serious: No
  Sender: FDA-Public Use
  Company Number: 2011HGS-002914

PATIENT
  Age: 45 Year
  Sex: Female

DRUGS (10)
  1. BENLYSTA [Suspect]
     Indication: SYSTEMIC LUPUS ERYTHEMATOSUS
     Dosage: 100MG,1 IN 28 D, INTRAVENOUS DRIP
     Route: 041
     Dates: start: 20110901
  2. PLAQUENIL (HYDROCHLOROQUINE PHOSPHATE) (HYDROCHLOROQUINE PHOSPHATE) [Concomitant]
  3. TOPAMAX (TOPIRAMATE) (TOPIRAMATE) [Concomitant]
  4. AZULFIDINE (SULFASALAZINE) (SULFASALAZINE) [Concomitant]
  5. COUMADIN (WARFARIN SODIUM) (WARFARIN SODIUM) [Concomitant]
  6. COMPAZINE (PROCHLORPERAZINE EDISYLATE) (PROCHLORPERAZINE EDISYLATE) [Concomitant]
  7. ZOFRAN (ONDANSETRON) (ONDANSETRON) [Concomitant]
  8. MYFORTIC (MYCOPHENOLATE SODIUM) (MYCOPHENOLOATE SODIUM) [Concomitant]
  9. VALIUM (DIAZEPAM) (DIAZEPAM) [Concomitant]
  10. KLONOPIN (CLONAZEPAM) (KLONAZEPAM) [Concomitant]

REACTIONS (1)
  - NAUSEA [None]
